FAERS Safety Report 5337614-0 (Version None)
Quarter: 2007Q2

REPORT INFORMATION
  Report Type: 
  Country: None (occurrence: None)
  Receive Date: 20070524
  Receipt Date: 20070516
  Transmission Date: 20071010
  Serious: Yes (Hospitalization, Other)
  Sender: FDA-Public Use
  Company Number: 163-20785-07050907

PATIENT
  Age: 74 Year
  Sex: Male
  Weight: 59.4212 kg

DRUGS (10)
  1. THALOMID [Suspect]
     Indication: NON-SMALL CELL LUNG CANCER
     Dosage: 200MG W/WKLY TITRATION OF 100MG UP TO 1000MG, DAILY, ORAL
     Route: 048
     Dates: start: 20020813
  2. PACLITAXEL [Suspect]
     Indication: NON-SMALL CELL LUNG CANCER
     Dosage: 225 MG/M2, OVER 3 HOURS ON DAY 1 EVERY 21 DAYS X2, INTRAVENOUS
     Route: 042
     Dates: start: 20020813
  3. CARBOPLATIN [Suspect]
     Indication: NON-SMALL CELL LUNG CANCER
     Dosage: AT AUC=6, OVER 15-30 MIN ON DAY 1 EVERY 21 DAYS X2, INTRAVENIOUS
     Route: 042
     Dates: start: 20020813
  4. COMBIVENT [Concomitant]
  5. PREDNISONE TAB [Concomitant]
  6. FLOREDIL CHLORHYDRATE (MOMETASONE FUROATE) [Concomitant]
  7. PULMICORT [Concomitant]
  8. GLUCOTROL [Concomitant]
  9. SPIRONOLACTONE [Concomitant]
  10. ALLOPURINOL [Concomitant]

REACTIONS (2)
  - EPISTAXIS [None]
  - NASAL SEPTUM PERFORATION [None]
